FAERS Safety Report 21216107 (Version 1)
Quarter: 2022Q3

REPORT INFORMATION
  Report Type: Spontaneous
  Country: US (occurrence: US)
  Receive Date: 20220816
  Receipt Date: 20220816
  Transmission Date: 20221026
  Serious: No
  Sender: FDA-Public Use
  Company Number: US-BRISTOL-MYERS SQUIBB COMPANY-2022-090102

PATIENT
  Age: 85 Year
  Sex: Female
  Weight: 73.94 kg

DRUGS (1)
  1. POMALYST [Suspect]
     Active Substance: POMALIDOMIDE
     Indication: Plasma cell myeloma
     Dosage: HS FOR 21D ON 7D OFF
     Route: 048
     Dates: start: 20220715, end: 20220808

REACTIONS (1)
  - Rash [Recovering/Resolving]
